FAERS Safety Report 17218397 (Version 1)
Quarter: 2019Q4

REPORT INFORMATION
  Report Type: Spontaneous
  Country: GB (occurrence: GB)
  Receive Date: 20191231
  Receipt Date: 20191231
  Transmission Date: 20200122
  Serious: Yes (Hospitalization)
  Sender: FDA-Public Use
  Company Number: GB-TEVA-2019-GB-1158508

PATIENT
  Age: 90 Year
  Sex: Female

DRUGS (9)
  1. BISOPROLOL [Concomitant]
     Active Substance: BISOPROLOL
     Dosage: 1.25 MG
  2. CALFOVIT D3 [Concomitant]
     Dosage: 1 DOSAGE FORM,  SACHET
  3. LANSOPRAZOLE. [Suspect]
     Active Substance: LANSOPRAZOLE
     Dosage: 60 MG
     Route: 048
  4. PARACETAMOL [Concomitant]
     Active Substance: ACETAMINOPHEN
     Dosage: 500MG-1G UP TO 4 TIMES A DAY
  5. DONEPEZIL. [Concomitant]
     Active Substance: DONEPEZIL
     Dosage: 5 MG, NIGHT
  6. FUROSEMIDE. [Suspect]
     Active Substance: FUROSEMIDE
     Dosage: 40 MG, MORNING
     Route: 048
  7. ACIDEX [Concomitant]
     Active Substance: CALCIUM CARBONATE\SODIUM ALGINATE\SODIUM BICARBONATE
     Dosage: 15 ML
  8. FLUTICASONE. [Concomitant]
     Active Substance: FLUTICASONE
     Dosage: 2 DOSAGE FORMS, EACH NOSTRIL
     Route: 045
  9. LEVETIRACETAM. [Suspect]
     Active Substance: LEVETIRACETAM
     Dosage: 500 MG
     Route: 048

REACTIONS (1)
  - Hyponatraemia [Not Recovered/Not Resolved]
